FAERS Safety Report 8286349-3 (Version None)
Quarter: 2012Q1

REPORT INFORMATION
  Report Type: 
  Country: None (occurrence: None)
  Receive Date: 20120326
  Receipt Date: 20120309
  Transmission Date: 20120608
  Serious: Yes (Death)
  Sender: FDA-Public Use
  Company Number: ALB-005-12-CN

PATIENT

DRUGS (1)
  1. HUMAN ALBUMIN GRIFOLS 20% [Suspect]
     Indication: HYPOALBUMINAEMIA
     Dosage: INTRAVENOUS (NOT OTHERWISE SPECIFIED)
     Route: 042
     Dates: start: 20120301, end: 20120301

REACTIONS (2)
  - CHILLS [None]
  - MUSCLE SPASMS [None]
